FAERS Safety Report 6578062-5 (Version None)
Quarter: 2010Q1

REPORT INFORMATION
  Report Type: 
  Country: None (occurrence: None)
  Receive Date: 20100211
  Receipt Date: 20100204
  Transmission Date: 20100710
  Serious: Yes (Hospitalization)
  Sender: FDA-Public Use
  Company Number: IT-ELI_LILLY_AND_COMPANY-IT201002001413

PATIENT
  Sex: Female

DRUGS (4)
  1. HUMALOG [Suspect]
     Indication: TYPE 2 DIABETES MELLITUS
     Dosage: 34 IU, DAILY (1/D)
     Route: 058
     Dates: start: 20091120, end: 20091101
  2. HUMALOG [Suspect]
     Dosage: 6 IU, UNK
     Route: 058
     Dates: start: 20091101, end: 20091129
  3. HUMALOG [Suspect]
     Dosage: UNK, UNKNOWN
  4. LANTUS [Concomitant]
     Indication: TYPE 2 DIABETES MELLITUS
     Dosage: 10 IU, DAILY (1/D)
     Route: 058
     Dates: start: 20091120, end: 20091129

REACTIONS (4)
  - HYPERHIDROSIS [None]
  - HYPOGLYCAEMIA [None]
  - LOSS OF CONSCIOUSNESS [None]
  - PALLOR [None]
